FAERS Safety Report 24631560 (Version 1)
Quarter: 2024Q4

REPORT INFORMATION
  Report Type: Spontaneous
  Country: US (occurrence: US)
  Receive Date: 20241118
  Receipt Date: 20241118
  Transmission Date: 20250114
  Serious: Yes (Life-Threatening)
  Sender: MYLAN
  Company Number: US-MYLANLABS-2024M1102817

PATIENT
  Age: 3 Decade
  Sex: Male

DRUGS (2)
  1. DIAZEPAM [Interacting]
     Active Substance: DIAZEPAM
     Indication: Product used for unknown indication
     Dosage: 10 MILLIGRAM
     Route: 065
  2. MORPHINE [Interacting]
     Active Substance: MORPHINE
     Indication: Eye pain
     Dosage: 10 MILLIGRAM
     Route: 030

REACTIONS (2)
  - Labelled drug-drug interaction medication error [Recovered/Resolved]
  - Respiratory depression [Recovered/Resolved]
